FAERS Safety Report 15628994 (Version 1)
Quarter: 2018Q4

REPORT INFORMATION
  Report Type: Spontaneous
  Country: JP (occurrence: JP)
  Receive Date: 20181116
  Receipt Date: 20181116
  Transmission Date: 20190205
  Serious: Yes (Death, Hospitalization, Other)
  Sender: FDA-Public Use
  Company Number: PHJP2018JP015555

PATIENT
  Age: 77 Year
  Sex: Male

DRUGS (10)
  1. KEYTRUDA [Concomitant]
     Active Substance: PEMBROLIZUMAB
     Indication: HYPERCALCAEMIA
  2. OPDIVO [Concomitant]
     Active Substance: NIVOLUMAB
     Indication: BLADDER CANCER
     Dosage: UNK
     Route: 065
     Dates: start: 201808
  3. GEMCITABINE [Concomitant]
     Active Substance: GEMCITABINE\GEMCITABINE HYDROCHLORIDE
     Indication: HYPERCALCAEMIA
  4. GEMCITABINE [Concomitant]
     Active Substance: GEMCITABINE\GEMCITABINE HYDROCHLORIDE
     Indication: BLADDER CANCER
     Dosage: UNK
     Route: 065
     Dates: start: 201803, end: 201805
  5. ZOMETA [Suspect]
     Active Substance: ZOLEDRONIC ACID
     Indication: BLADDER CANCER
     Dosage: 4 MG, UNK
     Route: 041
     Dates: start: 20180307, end: 20180814
  6. OPDIVO [Concomitant]
     Active Substance: NIVOLUMAB
     Indication: HYPERCALCAEMIA
  7. CISPLATIN. [Concomitant]
     Active Substance: CISPLATIN
     Indication: HYPERCALCAEMIA
  8. ZOMETA [Suspect]
     Active Substance: ZOLEDRONIC ACID
     Indication: HYPERCALCAEMIA
     Dosage: 3.5 MG, UNK
     Route: 041
     Dates: start: 20180815, end: 20180825
  9. CISPLATIN. [Concomitant]
     Active Substance: CISPLATIN
     Indication: BLADDER CANCER
     Dosage: UNK
     Route: 065
     Dates: start: 201803, end: 201805
  10. KEYTRUDA [Concomitant]
     Active Substance: PEMBROLIZUMAB
     Indication: BLADDER CANCER
     Dosage: UNK
     Route: 065
     Dates: start: 201808

REACTIONS (9)
  - Creatinine renal clearance abnormal [Not Recovered/Not Resolved]
  - Metastases to skin [Not Recovered/Not Resolved]
  - Hypocalcaemia [Recovered/Resolved]
  - Drug effect incomplete [Recovered/Resolved]
  - Renal impairment [Unknown]
  - Bladder cancer [Fatal]
  - Metastases to lung [Fatal]
  - Malignant neoplasm progression [Fatal]
  - Respiratory failure [Fatal]

NARRATIVE: CASE EVENT DATE: 201803
